FAERS Safety Report 7484180-X (Version None)
Quarter: 2011Q2

REPORT INFORMATION
  Report Type: 
  Country: None (occurrence: None)
  Receive Date: 20110517
  Receipt Date: 20110504
  Transmission Date: 20111010
  Serious: Yes (Hospitalization, Other)
  Sender: FDA-Public Use
  Company Number: US-CELGENEUS-163-21880-11022736

PATIENT
  Sex: Female

DRUGS (10)
  1. REVLIMID [Suspect]
     Indication: MULTIPLE MYELOMA
     Dosage: 5 MILLIGRAM
     Route: 048
     Dates: start: 20090603
  2. REVLIMID [Suspect]
     Dosage: 5 MILLIGRAM
     Route: 048
     Dates: start: 20101101, end: 20110214
  3. REVLIMID [Suspect]
     Dosage: 5 MILLIGRAM
     Route: 048
     Dates: start: 20110218
  4. ATENOLOL [Concomitant]
     Indication: HYPERTENSION
     Dosage: 25 MILLIGRAM
     Route: 065
  5. ASPIRIN [Concomitant]
     Dosage: 81 MILLIGRAM
     Route: 065
  6. GLIPIZIDE [Concomitant]
     Dosage: 2.5 MILLIGRAM
     Route: 065
  7. DECADRON [Concomitant]
     Dosage: 40 MILLIGRAM
     Route: 065
     Dates: start: 20101001
  8. ZOCOR [Concomitant]
     Dosage: 20 MILLIGRAM
     Route: 065
  9. OXYCONTIN [Concomitant]
     Indication: PAIN
     Route: 065
  10. LANOXIN [Concomitant]
     Indication: ARRHYTHMIA
     Dosage: 125 MICROGRAM
     Route: 065
     Dates: start: 20110207

REACTIONS (2)
  - ARRHYTHMIA [None]
  - SKULL FRACTURE [None]
